FAERS Safety Report 6128817-6 (Version None)
Quarter: 2009Q1

REPORT INFORMATION
  Report Type: 
  Country: None (occurrence: None)
  Receive Date: 20090320
  Receipt Date: 20090310
  Transmission Date: 20090719
  Serious: Yes (Life-Threatening, Hospitalization)
  Sender: FDA-Public Use
  Company Number: 2009-00929

PATIENT
  Age: 67 Year
  Sex: Male
  Weight: 59 kg

DRUGS (29)
  1. VELCADE [Suspect]
     Indication: MULTIPLE MYELOMA
     Dosage: 1.7 MG , INTRAVENOUS
     Route: 042
     Dates: start: 20090209, end: 20090219
  2. OXYCODONE HYDROCHLOROIDE (OXYCODONE HYDROCHLORIDE) [Concomitant]
  3. LENDORM [Concomitant]
  4. ALFAROL (ALFACALCIDOL) [Concomitant]
  5. LOXONIN (LOXOPROFEN SODIUM) TABLET [Concomitant]
  6. OMEPRAZOLE (OMEPRAZOLE) TABLET [Concomitant]
  7. NOVAMIN (PROCHLORPERAZINE) TABLET [Concomitant]
  8. MAGNESIUM OXIDE (MAGNESIUM OXIDE) TABLET [Concomitant]
  9. ALLOPURINOL [Concomitant]
  10. ACETAMINOPHEN [Concomitant]
  11. ALLELOCK (OLOPATADINE HYDROCHLORIDE) TABLET [Concomitant]
  12. OXINORM (ORGOTEIN) [Concomitant]
  13. GENTACIN (GENTAMICIN SULFATE) OINTMENT, CREAM [Concomitant]
  14. ISODINE (POVIDONE-IODINE) [Concomitant]
  15. RESTAMON CORTIZON (HYDROCORTISONE ACETATE, DIPHENHYDRAMINE HYDROCHLORI [Concomitant]
  16. ANTEBATE (BETAMETHASONE BUTYRATE PROPIONATE) OINTMENT, CREAM [Concomitant]
  17. HEPPFLUSH (HEPARIN-SODIUM) [Concomitant]
  18. ZOMETA [Concomitant]
  19. DOPAMINE HCL [Concomitant]
  20. SODIUM PICOSULFATE (SODIUM PICOSULFATE) LIQUID [Concomitant]
  21. TELEMINSOFT (BISACODYL) SUPPOSITORY [Concomitant]
  22. ISOTONIC SOLUTIONS [Concomitant]
  23. CEFAZOLIN SODIUM [Concomitant]
  24. DECADRON [Concomitant]
  25. SOLDEM 1 (GLUCOSE, SODIUM LACTATE, SODIUM CHLORIDE) [Concomitant]
  26. PRIMPERAN TAB [Concomitant]
  27. FIRSTCIN (CEFOZOPRAN HYDROCHLORIDE) [Concomitant]
  28. LACTEC (SODIUM LACTATE, POTASSIUM CHLORIDE, CALCIUM CHLORIDE ANHYDROUS [Concomitant]
  29. BACLOFEN [Concomitant]

REACTIONS (4)
  - CHEILITIS [None]
  - ERYTHEMA [None]
  - GENERALISED ERYTHEMA [None]
  - SHOCK [None]
